FAERS Safety Report 4959017-0 (Version None)
Quarter: 2006Q1

REPORT INFORMATION
  Report Type: 
  Country: None (occurrence: None)
  Receive Date: 20060328
  Receipt Date: 20060316
  Transmission Date: 20060701
  Serious: Yes (Death)
  Sender: FDA-Public Use
  Company Number: HQWYE374117MAR06

PATIENT
  Age: 55 Year
  Sex: Male
  Weight: 59.02 kg

DRUGS (4)
  1. RAPAMUNE [Suspect]
     Indication: ORGAN TRANSPLANT
     Dosage: 2 MG 1X PER 1 DAY, ORAL
     Route: 048
     Dates: start: 20050101
  2. CELLCEPT [Concomitant]
  3. DIFLUCAN [Concomitant]
  4. ASPIRIN [Concomitant]

REACTIONS (1)
  - GASTROINTESTINAL HAEMORRHAGE [None]
